FAERS Safety Report 8180247-1 (Version None)
Quarter: 2012Q1

REPORT INFORMATION
  Report Type: 
  Country: None (occurrence: None)
  Receive Date: 20120302
  Receipt Date: 20110118
  Transmission Date: 20120608
  Serious: No
  Sender: FDA-Public Use
  Company Number: US-GLAXOSMITHKLINE-A0906921A

PATIENT
  Age: 51 Year
  Sex: Male

DRUGS (2)
  1. CLOBETASOL PROPIONATE [Suspect]
     Indication: PSORIASIS
     Dosage: 100G THREE TIMES PER WEEK
     Route: 061
  2. LISINOPRIL [Concomitant]

REACTIONS (3)
  - DRUG INEFFECTIVE [None]
  - PRODUCT QUALITY ISSUE [None]
  - HAIR DISORDER [None]
